FAERS Safety Report 21958703 (Version 1)
Quarter: 2023Q1

REPORT INFORMATION
  Report Type: Report from Study
  Country: US (occurrence: US)
  Receive Date: 20230206
  Receipt Date: 20230206
  Transmission Date: 20230418
  Serious: Yes (Congenital Anomaly)
  Sender: FDA-Public Use
  Company Number: US-ABBVIE-4295460

PATIENT
  Sex: Female

DRUGS (1)
  1. RITONAVIR [Suspect]
     Active Substance: RITONAVIR
     Indication: Maternal exposure timing unspecified

REACTIONS (3)
  - Haemangioma of skin [Unknown]
  - Foetal exposure during pregnancy [Unknown]
  - Pelvic kidney [Unknown]
